FAERS Safety Report 10950987 (Version 1)
Quarter: 2015Q1

REPORT INFORMATION
  Report Type: Spontaneous
  Country: US (occurrence: US)
  Receive Date: 20150324
  Receipt Date: 20150324
  Transmission Date: 20150721
  Serious: Yes (Other)
  Sender: FDA-Public Use
  Company Number: US-PFIZER INC-2015098696

PATIENT

DRUGS (1)
  1. DILANTIN [Suspect]
     Active Substance: PHENYTOIN
     Indication: SEIZURE
     Dosage: UNK

REACTIONS (6)
  - Ataxia [Unknown]
  - Nystagmus [Unknown]
  - Neurological decompensation [Recovering/Resolving]
  - Encephalopathy [Unknown]
  - Toxicity to various agents [Unknown]
  - Cerebellar syndrome [Unknown]
